FAERS Safety Report 8960450 (Version 1)
Quarter: 2012Q4

REPORT INFORMATION
  Report Type: Spontaneous
  Country: US (occurrence: None)
  Receive Date: 20121211
  Receipt Date: 20121211
  Transmission Date: 20130627
  Serious: Yes (Other)
  Sender: FDA-Public Use
  Company Number: None

PATIENT
  Age: 20 Year
  Sex: Female
  Weight: 108.86 kg

DRUGS (3)
  1. DEXTROAMPHETAMINE [Suspect]
     Indication: ADHD
     Dosage: 1 daily oral
     Route: 048
     Dates: start: 20121106
  2. DEXTROAMPHETAMINE [Suspect]
     Indication: ADHD
     Dates: start: 20121107
  3. DEXTROAMPHETAMINE [Suspect]
     Indication: ADHD
     Dates: start: 20121108

REACTIONS (5)
  - Hyperhidrosis [None]
  - Disturbance in attention [None]
  - Abnormal behaviour [None]
  - Attention deficit/hyperactivity disorder [None]
  - Condition aggravated [None]
